FAERS Safety Report 4975162-8 (Version None)
Quarter: 2006Q2

REPORT INFORMATION
  Report Type: 
  Country: None (occurrence: None)
  Receive Date: 20060417
  Receipt Date: 20060417
  Transmission Date: 20061013
  Serious: Yes (Death)
  Sender: FDA-Public Use
  Company Number: None

PATIENT
  Age: 51 Year
  Sex: Male
  Weight: 71.8951 kg

DRUGS (5)
  1. SEROSTIM [Suspect]
     Indication: FAT REDISTRIBUTION
     Dosage: 1/2 CC   QD   SQ
     Route: 058
     Dates: start: 20060127, end: 20060208
  2. SEROSTIM [Suspect]
     Indication: OFF LABEL USE
     Dosage: 1/2 CC   QD   SQ
     Route: 058
     Dates: start: 20060127, end: 20060208
  3. SEROSTIM [Suspect]
  4. SEROSTIM [Suspect]
  5. SEROSTIM [Suspect]

REACTIONS (7)
  - ACIDOSIS [None]
  - BLOOD GLUCOSE INCREASED [None]
  - BLOOD SODIUM INCREASED [None]
  - BRADYCARDIA [None]
  - CARDIAC ARREST [None]
  - CONFUSIONAL STATE [None]
  - INCOHERENT [None]
